FAERS Safety Report 7078648-8 (Version None)
Quarter: 2010Q4

REPORT INFORMATION
  Report Type: 
  Country: None (occurrence: None)
  Receive Date: 20101102
  Receipt Date: 20101021
  Transmission Date: 20110411
  Serious: Yes (Other)
  Sender: FDA-Public Use
  Company Number: PHFR2010GB04976

PATIENT
  Age: 67 Year
  Sex: Female
  Weight: 84 kg

DRUGS (10)
  1. CLOZAPINE [Suspect]
     Indication: SCHIZOPHRENIA
     Dosage: 525 MG
     Route: 048
     Dates: start: 20000101
  2. AD CAL [Concomitant]
     Indication: OSTEOPOROSIS PROPHYLAXIS
     Dosage: 2DF
     Route: 048
     Dates: start: 20070101
  3. ASPIRIN [Concomitant]
     Dosage: 75MG
     Route: 048
     Dates: start: 20100219
  4. ATENOLOL [Concomitant]
     Indication: TACHYCARDIA
     Dosage: 25MG/UNK
     Route: 048
  5. DICLOFENAC SODIUM [Concomitant]
     Dosage: 50 MG, TID
     Route: 048
     Dates: end: 20100927
  6. FLUOXETINE [Concomitant]
     Indication: DEPRESSION
     Dosage: 40MG
     Route: 048
     Dates: start: 20000101
  7. LANSOPRAZOLE [Concomitant]
     Indication: PROPHYLAXIS
     Dosage: 15MG
     Route: 048
  8. LANSOPRAZOLE [Concomitant]
     Indication: GASTROINTESTINAL DISORDER
  9. SIMVASTATIN [Concomitant]
     Indication: HYPERLIPIDAEMIA
     Dosage: 40MG
     Route: 048
     Dates: start: 20091118
  10. ZOPICLONE [Concomitant]
     Indication: INSOMNIA
     Dosage: 3.75MG/DAY
     Route: 048

REACTIONS (2)
  - MUSCULAR WEAKNESS [None]
  - TRANSIENT ISCHAEMIC ATTACK [None]
